FAERS Safety Report 15377742 (Version 3)
Quarter: 2019Q2

REPORT INFORMATION
  Report Type: Spontaneous
  Country: US (occurrence: US)
  Receive Date: 20180913
  Receipt Date: 20190506
  Transmission Date: 20190711
  Serious: No
  Sender: FDA-Public Use
  Company Number: US-SA-2018SA256175

PATIENT
  Age: 14 Year
  Sex: Male
  Weight: 46.27 kg

DRUGS (2)
  1. CEREZYME [Suspect]
     Active Substance: IMIGLUCERASE
     Indication: GAUCHER^S DISEASE
     Dosage: 2400 UNK, QOW
     Route: 041
     Dates: start: 20171005
  2. CEREZYME [Suspect]
     Active Substance: IMIGLUCERASE
     Dosage: 2700 UNK, QOW
     Route: 041

REACTIONS (1)
  - Weight increased [Not Recovered/Not Resolved]

NARRATIVE: CASE EVENT DATE: 20180906
